FAERS Safety Report 6644030-8 (Version None)
Quarter: 2010Q1

REPORT INFORMATION
  Report Type: 
  Country: None (occurrence: None)
  Receive Date: 20100319
  Receipt Date: 20100319
  Transmission Date: 20100710
  Serious: No
  Sender: FDA-Public Use
  Company Number: None

PATIENT
  Age: 43 Year
  Sex: Female
  Weight: 81.6475 kg

DRUGS (1)
  1. ZOLPIDEM [Suspect]
     Dosage: 1 BEDTIME

REACTIONS (5)
  - AGGRESSION [None]
  - LIBIDO INCREASED [None]
  - LOGORRHOEA [None]
  - MEMORY IMPAIRMENT [None]
  - MIDDLE INSOMNIA [None]
